FAERS Safety Report 21311969 (Version 2)
Quarter: 2022Q3

REPORT INFORMATION
  Report Type: Spontaneous
  Country: FR (occurrence: FR)
  Receive Date: 20220909
  Receipt Date: 20220923
  Transmission Date: 20221026
  Serious: Yes (Other)
  Sender: FDA-Public Use
  Company Number: FR-PFIZER INC-PV202200052607

PATIENT
  Age: 69 Year
  Sex: Male
  Weight: 90 kg

DRUGS (8)
  1. MYLOTARG [Suspect]
     Active Substance: GEMTUZUMAB OZOGAMICIN
     Indication: Acute myeloid leukaemia
     Dosage: 3 MG/M2, DAILY, D1, INDUCTION
     Dates: start: 20211214
  2. MYLOTARG [Suspect]
     Active Substance: GEMTUZUMAB OZOGAMICIN
     Dosage: 3 MG/M2, DAILY, D4, INDUCTION
     Dates: start: 20211217
  3. MYLOTARG [Suspect]
     Active Substance: GEMTUZUMAB OZOGAMICIN
     Dosage: 3 MG/M2, DAILY, D7, INDUCTION
     Dates: start: 20211220
  4. MYLOTARG [Suspect]
     Active Substance: GEMTUZUMAB OZOGAMICIN
     Dosage: 3 MG/M2, 1X/DAY: SINGLE CONSOLIDATION DOSE
     Dates: start: 20220218
  5. CYTARABINE [Suspect]
     Active Substance: CYTARABINE
     Indication: Acute myeloid leukaemia
     Dosage: D1, INDUCTION
     Dates: start: 20211214
  6. CYTARABINE [Suspect]
     Active Substance: CYTARABINE
     Dosage: D4, INDUCTION
     Dates: start: 20211217
  7. CYTARABINE [Suspect]
     Active Substance: CYTARABINE
     Dosage: D7, INDUCTION
     Dates: start: 20211220
  8. CYTARABINE [Suspect]
     Active Substance: CYTARABINE
     Dosage: SINGLE CONSOLIDATION DOSE
     Dates: start: 20220218

REACTIONS (17)
  - Hypokalaemia [Recovered/Resolved]
  - Fall [Unknown]
  - Presyncope [Unknown]
  - Haematoma [Unknown]
  - Bacterial infection [Recovered/Resolved]
  - Myelosuppression [Unknown]
  - Neoplasm recurrence [Not Recovered/Not Resolved]
  - Abdominal pain upper [Recovered/Resolved]
  - C-reactive protein increased [Recovering/Resolving]
  - Constipation [Unknown]
  - General physical health deterioration [Recovered/Resolved]
  - Pyrexia [Recovered/Resolved]
  - Chills [Unknown]
  - Vomiting [Unknown]
  - Back pain [Recovered/Resolved]
  - COVID-19 [Unknown]
  - Spinal pain [Unknown]

NARRATIVE: CASE EVENT DATE: 20211218
